FAERS Safety Report 14569560 (Version 2)
Quarter: 2018Q1

REPORT INFORMATION
  Report Type: Report from Study
  Country: CA (occurrence: CA)
  Receive Date: 20180224
  Receipt Date: 20180328
  Transmission Date: 20180509
  Serious: Yes (Other)
  Sender: FDA-Public Use
  Company Number: CA-ROCHE-2077451

PATIENT
  Age: 64 Year
  Sex: Female

DRUGS (6)
  1. XOLAIR [Suspect]
     Active Substance: OMALIZUMAB
     Indication: CHRONIC SPONTANEOUS URTICARIA
     Route: 058
     Dates: start: 20171024
  2. XOLAIR [Suspect]
     Active Substance: OMALIZUMAB
     Route: 058
  3. XOLAIR [Suspect]
     Active Substance: OMALIZUMAB
     Route: 058
     Dates: start: 20180116
  4. REACTINE (CANADA) [Concomitant]
     Active Substance: CETIRIZINE HYDROCHLORIDE
     Indication: CHRONIC SPONTANEOUS URTICARIA
     Route: 048
     Dates: start: 2015
  5. XOLAIR [Suspect]
     Active Substance: OMALIZUMAB
     Route: 058
     Dates: start: 20180313
  6. SINGULAIR [Concomitant]
     Active Substance: MONTELUKAST SODIUM
     Indication: CHRONIC SPONTANEOUS URTICARIA
     Route: 048
     Dates: start: 2016

REACTIONS (10)
  - Feeling of body temperature change [Recovering/Resolving]
  - Feeling abnormal [Unknown]
  - Skin disorder [Recovering/Resolving]
  - Lower respiratory tract infection [Recovering/Resolving]
  - Arthralgia [Unknown]
  - Pyrexia [Unknown]
  - Pruritus [Recovering/Resolving]
  - Dizziness [Unknown]
  - Feeling hot [Unknown]
  - Fatigue [Unknown]

NARRATIVE: CASE EVENT DATE: 20171024
